FAERS Safety Report 12508608 (Version 1)
Quarter: 2016Q2

REPORT INFORMATION
  Report Type: Spontaneous
  Country: CA (occurrence: CA)
  Receive Date: 20160629
  Receipt Date: 20160629
  Transmission Date: 20160815
  Serious: Yes (Hospitalization, Other)
  Sender: FDA-Public Use
  Company Number: CA-APOTEX-2016AP009216

PATIENT
  Age: 42 Year
  Sex: Female

DRUGS (2)
  1. APO-FLUCONAZOLE [Suspect]
     Active Substance: FLUCONAZOLE
     Indication: SUPERINFECTION
  2. APO-FLUCONAZOLE [Suspect]
     Active Substance: FLUCONAZOLE
     Indication: ECZEMA
     Dosage: UNK
     Route: 048

REACTIONS (1)
  - Kounis syndrome [Recovered/Resolved]
